FAERS Safety Report 8783362 (Version 1)
Quarter: 2012Q4

REPORT INFORMATION
  Report Type: 
  Country: US (occurrence: US)
  Receive Date: 20120913
  Receipt Date: 20120913
  Transmission Date: 20130627
  Serious: No
  Sender: FDA-Public Use
  Company Number: US-VERTEX PHARMACEUTICAL INC.-AE-2012-008142

PATIENT
  Age: 59 Year
  Sex: Male
  Weight: 83.64 kg

DRUGS (7)
  1. INCIVEK [Suspect]
     Indication: HEPATITIS C
     Route: 048
     Dates: start: 20120525
  2. RIBAVIRIN [Concomitant]
     Indication: HEPATITIS C
     Route: 048
     Dates: start: 20120525
  3. PEGASYS [Concomitant]
     Indication: HEPATITIS C
     Route: 058
     Dates: start: 20120525
  4. ASTHMANEX [Concomitant]
     Indication: ASTHMA
  5. XOPENEX [Concomitant]
     Indication: ASTHMA
  6. ALBUTEROL [Concomitant]
     Indication: ASTHMA
  7. PREVACID [Concomitant]
     Route: 048

REACTIONS (4)
  - Asthma [Not Recovered/Not Resolved]
  - Cough [Not Recovered/Not Resolved]
  - Oropharyngeal pain [Not Recovered/Not Resolved]
  - Tongue coated [Not Recovered/Not Resolved]
